FAERS Safety Report 6243396-0 (Version None)
Quarter: 2009Q2

REPORT INFORMATION
  Report Type: 
  Country: None (occurrence: None)
  Receive Date: 20090622
  Receipt Date: 20090608
  Transmission Date: 20091009
  Serious: Yes (Other)
  Sender: FDA-Public Use
  Company Number: 8047175

PATIENT
  Age: 38 Year
  Sex: Male
  Weight: 63 kg

DRUGS (8)
  1. KEPPRA [Suspect]
  2. PHENHYDAN /00017401/ [Suspect]
     Indication: PANCREATIC DISORDER
     Dosage: 100 MG 3/D PO
     Route: 048
     Dates: start: 19960901, end: 20050801
  3. LAMOTRIGINE [Concomitant]
  4. OXYGESIC [Concomitant]
  5. PANTOZOL /01263202/ [Concomitant]
  6. KREON /00014701/ [Concomitant]
  7. ERGENYL CHRONO [Suspect]
  8. VALIUM [Suspect]
     Indication: CONVULSION
     Dosage: 1000 MG 2/D PO
     Route: 048
     Dates: start: 19960901, end: 20050801

REACTIONS (6)
  - ASTHENIA [None]
  - DEPRESSION [None]
  - FATIGUE [None]
  - SOCIAL AVOIDANT BEHAVIOUR [None]
  - SOMNOLENCE [None]
  - SUICIDAL IDEATION [None]
